FAERS Safety Report 4852987-0 (Version None)
Quarter: 2005Q4

REPORT INFORMATION
  Report Type: 
  Country: None (occurrence: None)
  Receive Date: 20051214
  Receipt Date: 20051129
  Transmission Date: 20060501
  Serious: Yes (Other)
  Sender: FDA-Public Use
  Company Number: GBWYE186129NOV05

PATIENT
  Age: 50 Year
  Sex: Female
  Weight: 77.6 kg

DRUGS (6)
  1. ENBREL [Suspect]
     Indication: DRUG USE FOR UNKNOWN INDICATION
     Route: 058
     Dates: start: 20051011, end: 20051022
  2. PREDNISOLONE [Concomitant]
     Indication: RHEUMATOID ARTHRITIS
     Route: 048
     Dates: start: 20031201
  3. RAMIPRIL [Concomitant]
     Indication: HYPERTENSION
     Route: 048
  4. BENDROFLUMETHIAZIDE [Concomitant]
     Indication: HYPERTENSION
     Route: 048
  5. FELODIPINE [Concomitant]
     Indication: HYPERTENSION
  6. CO-DYDRAMOL [Concomitant]
     Indication: ARTHRALGIA
     Dosage: 2 TABLETS AS REQUIRED

REACTIONS (3)
  - INJECTION SITE REACTION [None]
  - NEUTROPENIA [None]
  - URTICARIA [None]
